FAERS Safety Report 9496682 (Version 1)
Quarter: 2013Q3

REPORT INFORMATION
  Report Type: Spontaneous
  Country: GB (occurrence: GB)
  Receive Date: 20130904
  Receipt Date: 20130904
  Transmission Date: 20140515
  Serious: Yes (Other)
  Sender: FDA-Public Use
  Company Number: PHHY2013GB093441

PATIENT
  Sex: Male

DRUGS (8)
  1. CANDESARTAN CILEXETIL [Suspect]
     Route: 048
     Dates: start: 2008, end: 201203
  2. CANDESARTAN CILEXETIL [Suspect]
     Dosage: 8 MG, BID
     Route: 048
     Dates: start: 201203, end: 20130814
  3. CANDESARTAN CILEXETIL [Suspect]
     Route: 048
  4. WARFARIN [Concomitant]
  5. BISOPROLOL [Concomitant]
  6. TAMSULOSIN [Concomitant]
  7. PLAVIX [Concomitant]
     Dates: start: 2005, end: 2007
  8. PLAVIX [Concomitant]
     Dates: start: 201207

REACTIONS (2)
  - Atrial flutter [Unknown]
  - Off label use [Unknown]
